FAERS Safety Report 19583114 (Version 1)
Quarter: 2021Q3

REPORT INFORMATION
  Report Type: Spontaneous
  Country: AU (occurrence: AU)
  Receive Date: 20210719
  Receipt Date: 20210719
  Transmission Date: 20211014
  Serious: Yes (Other)
  Sender: FDA-Public Use
  Company Number: AU-BAXTER-2021BAX016502

PATIENT
  Sex: Male

DRUGS (2)
  1. PACLITAXEL EBEWE [Suspect]
     Active Substance: PACLITAXEL
     Indication: ADENOCARCINOMA GASTRIC
     Route: 065
     Dates: start: 20210524
  2. SODIUM CHLORIDE (VIAFLO) 250ML [Suspect]
     Active Substance: SODIUM CHLORIDE
     Indication: MEDICATION DILUTION
     Route: 065
     Dates: start: 20210524

REACTIONS (5)
  - Back pain [Unknown]
  - Dyspnoea [Unknown]
  - Hypotension [Unknown]
  - Dizziness [Unknown]
  - Bradycardia [Unknown]

NARRATIVE: CASE EVENT DATE: 20210524
